FAERS Safety Report 10176946 (Version 2)
Quarter: 2014Q2

REPORT INFORMATION
  Report Type: Spontaneous
  Country: FR (occurrence: FR)
  Receive Date: 20140516
  Receipt Date: 20140523
  Transmission Date: 20141212
  Serious: Yes (Hospitalization)
  Sender: FDA-Public Use
  Company Number: FR-009507513-1405FRA003651

PATIENT
  Age: 60 Year
  Sex: Male

DRUGS (24)
  1. EMEND [Suspect]
     Dosage: UNK
     Route: 065
     Dates: start: 201402
  2. TAXOTERE [Suspect]
     Dosage: 110 MG, CYCLES
     Route: 065
     Dates: start: 201402
  3. CARBOPLATIN [Suspect]
     Dosage: 330 MG, CYCLES
     Route: 040
     Dates: start: 201402
  4. FLUOROURACIL [Suspect]
     Dosage: 1075 MG, QD
     Route: 040
     Dates: start: 201402
  5. ZOPHREN (ONDANSETRON) [Suspect]
     Dosage: UNK, ONCE
     Route: 065
     Dates: start: 201402
  6. METHYLPREDNISOLONE [Suspect]
     Dosage: UNK UNK, ONCE
     Route: 065
     Dates: start: 201402
  7. SOLUPRED [Suspect]
     Dosage: 20 MG, UNK
     Route: 065
  8. CELLCEPT [Suspect]
     Dosage: UNK
     Route: 065
     Dates: start: 201402, end: 201402
  9. ZARZIO [Concomitant]
     Dosage: 48 MU/ 0.5ML, QD
     Route: 065
     Dates: start: 20140227, end: 20140303
  10. MOPRAL (OMEPRAZOLE) [Concomitant]
     Dosage: 1 DF, UNK
     Route: 065
  11. ATENOLOL [Concomitant]
     Dosage: 50 MG, QOD
     Route: 065
  12. AMLODIPINE [Concomitant]
     Dosage: 10 MG, QD
     Route: 065
  13. COMBIGAN [Concomitant]
     Dosage: 1 DF, QOD
     Route: 065
  14. TRIATEC (RAMIPRIL) [Concomitant]
     Dosage: 5 MG, QD
     Route: 065
  15. IMOVANE [Concomitant]
     Dosage: 1 DF, QD
     Route: 065
  16. TRUSOPT [Concomitant]
     Dosage: 1 DF, Q3D
     Route: 065
  17. MAGO [Concomitant]
     Dosage: 1 DF, QD
     Route: 065
  18. VITAMIN C [Concomitant]
     Dosage: 1 G, QD
     Route: 065
  19. SPECIAFOLDINE [Concomitant]
     Dosage: 1 DF, QD
     Route: 065
  20. ALDACTONE (SPIRONOLACTONE) [Concomitant]
     Dosage: 0.5 DF, QOD
     Route: 065
  21. DOLIPRANE [Concomitant]
     Dosage: UNK, PRN
     Route: 065
  22. LYRICA [Concomitant]
     Dosage: 1 DF, QOD
     Route: 065
  23. ALPRAZOLAM [Concomitant]
     Dosage: UNK, PRN
     Route: 065
  24. HYPERIUM [Concomitant]
     Dosage: 1 DF, QOD
     Route: 065

REACTIONS (6)
  - Febrile neutropenia [Recovered/Resolved]
  - Diarrhoea [Recovered/Resolved]
  - Hypokalaemia [Recovered/Resolved]
  - Atrial fibrillation [Recovered/Resolved with Sequelae]
  - Thrombocytopenia [Recovered/Resolved]
  - Lymphopenia [Unknown]
